FAERS Safety Report 22057995 (Version 1)
Quarter: 2023Q1

REPORT INFORMATION
  Report Type: Spontaneous
  Country: IT (occurrence: IT)
  Receive Date: 20230303
  Receipt Date: 20230303
  Transmission Date: 20230418
  Serious: Yes (Other)
  Sender: FDA-Public Use
  Company Number: IT-RECORDATI RARE DISEASE INC.-2023001108

PATIENT

DRUGS (3)
  1. COSMEGEN [Suspect]
     Active Substance: DACTINOMYCIN
     Indication: Rhabdomyosarcoma
     Dosage: 1.84 MILLIGRAM
     Route: 042
     Dates: start: 20230218, end: 20230218
  2. IFOSFAMIDE [Suspect]
     Active Substance: IFOSFAMIDE
     Indication: Rhabdomyoma
     Dosage: 3690 MILLIGRAM, EVERY 180 MINUTE
     Route: 042
     Dates: start: 20230218, end: 20230218
  3. VINCRISTINE [Suspect]
     Active Substance: VINCRISTINE
     Indication: Rhabdomyosarcoma
     Dosage: 1.84 MILLIGRAM
     Route: 042
     Dates: start: 20230217, end: 20230217

REACTIONS (2)
  - Feeling abnormal [Recovering/Resolving]
  - Psychomotor hyperactivity [Recovering/Resolving]

NARRATIVE: CASE EVENT DATE: 20230218
